FAERS Safety Report 7463145-8 (Version None)
Quarter: 2011Q2

REPORT INFORMATION
  Report Type: 
  Country: None (occurrence: None)
  Receive Date: 20110506
  Receipt Date: 20110428
  Transmission Date: 20111010
  Serious: Yes (Hospitalization)
  Sender: FDA-Public Use
  Company Number: FR-PFIZER INC-2008073820

PATIENT
  Age: 53 Year
  Sex: Female

DRUGS (7)
  1. METHOTREXATE [Suspect]
     Dosage: UNK TABLET
     Route: 048
     Dates: start: 20060101
  2. LEFLUNOMIDE [Suspect]
     Indication: RHEUMATOID ARTHRITIS
     Route: 048
     Dates: start: 20040101, end: 20070101
  3. ENBREL [Suspect]
     Route: 058
     Dates: start: 20061201
  4. HUMIRA [Suspect]
     Indication: RHEUMATOID ARTHRITIS
     Dosage: UNK
     Dates: start: 20060101, end: 20061201
  5. SULFASALAZINE [Suspect]
     Dosage: UNK
     Route: 048
     Dates: start: 20030101, end: 20040101
  6. METHOTREXATE [Suspect]
     Dosage: UNK TABLET
     Route: 048
     Dates: start: 20040101, end: 20040101
  7. SULFASALAZINE [Suspect]
     Indication: RHEUMATOID ARTHRITIS
     Dosage: UNK
     Route: 048
     Dates: start: 19950101, end: 19960101

REACTIONS (1)
  - BREAST CANCER METASTATIC [None]
